FAERS Safety Report 7453568-5 (Version None)
Quarter: 2011Q2

REPORT INFORMATION
  Report Type: 
  Country: None (occurrence: None)
  Receive Date: 20110502
  Receipt Date: 20110224
  Transmission Date: 20111010
  Serious: No
  Sender: FDA-Public Use
  Company Number: US-ASTRAZENECA-2011SE10499

PATIENT
  Sex: Female

DRUGS (2)
  1. OTHER PRODUCT [Suspect]
  2. NEXIUM [Suspect]
     Route: 048

REACTIONS (2)
  - DIARRHOEA [None]
  - URINARY TRACT INFECTION [None]
